FAERS Safety Report 21816913 (Version 3)
Quarter: 2023Q1

REPORT INFORMATION
  Report Type: Spontaneous
  Country: US (occurrence: US)
  Receive Date: 20230104
  Receipt Date: 20230331
  Transmission Date: 20230417
  Serious: No
  Sender: FDA-Public Use
  Company Number: US-PFIZER INC-202300003260

PATIENT
  Age: 69 Year
  Sex: Male
  Weight: 65.76 kg

DRUGS (9)
  1. PAXLOVID [Suspect]
     Active Substance: NIRMATRELVIR\RITONAVIR
     Indication: COVID-19 treatment
     Dosage: 100 MG (6/DAY TO FOR 5 DAYS)
     Dates: start: 20221230
  2. PAXLOVID [Suspect]
     Active Substance: NIRMATRELVIR\RITONAVIR
     Dosage: UNK
  3. ROSUVASTATIN [Concomitant]
     Active Substance: ROSUVASTATIN
     Dosage: UNK
     Dates: start: 20221216
  4. OMEPRAZOLE [Concomitant]
     Active Substance: OMEPRAZOLE
     Dosage: UNK
     Dates: start: 20221216
  5. ALFUZOSIN [Concomitant]
     Active Substance: ALFUZOSIN
     Dosage: UNK
     Dates: start: 20221216
  6. FISH OIL [Concomitant]
     Active Substance: FISH OIL
     Dosage: UNK
     Dates: start: 20221216
  7. IRON [Concomitant]
     Active Substance: IRON
     Dosage: UNK
     Dates: start: 20221216
  8. PROSTATE PLUS [Concomitant]
     Dosage: UNK
     Dates: start: 20221216
  9. FIBER [Concomitant]
     Dosage: UNK
     Dates: start: 20221216

REACTIONS (2)
  - Pyrexia [Recovered/Resolved]
  - Dysgeusia [Recovered/Resolved]

NARRATIVE: CASE EVENT DATE: 20221230
